FAERS Safety Report 9145991 (Version 2)
Quarter: 2013Q1

REPORT INFORMATION
  Report Type: Spontaneous
  Country: US (occurrence: None)
  Receive Date: 20130208
  Receipt Date: 20130308
  Transmission Date: 20140127
  Serious: Yes (Death)
  Sender: FDA-Public Use
  Company Number: 144900

PATIENT
  Age: 66 Year
  Sex: Female
  Weight: 53 kg

DRUGS (1)
  1. LEUCOVORIN CALCIUM [Suspect]
     Indication: COLORECTAL CANCER METASTATIC

REACTIONS (6)
  - Completed suicide [None]
  - Anxiety [None]
  - Asphyxia [None]
  - Abdominal pain upper [None]
  - Depression [None]
  - Stress [None]
